FAERS Safety Report 8353832-1 (Version None)
Quarter: 2012Q2

REPORT INFORMATION
  Report Type: 
  Country: None (occurrence: None)
  Receive Date: 20120511
  Receipt Date: 20111222
  Transmission Date: 20120825
  Serious: No
  Sender: FDA-Public Use
  Company Number: US-GLAXOSMITHKLINE-A0959213A

PATIENT
  Age: 38 Year
  Sex: Female

DRUGS (5)
  1. VITAMIN D [Concomitant]
  2. HERCEPTIN [Concomitant]
  3. TYKERB [Suspect]
     Indication: BREAST CANCER
     Dosage: 3TAB PER DAY
     Route: 048
     Dates: start: 20111101
  4. BISOPROLOL FUMARATE [Suspect]
     Dosage: 5MG PER DAY
     Dates: start: 20111219
  5. LEVOTHYROXINE SODIUM [Concomitant]

REACTIONS (2)
  - PALPITATIONS [None]
  - ALOPECIA [None]
